FAERS Safety Report 6580798-7 (Version None)
Quarter: 2010Q1

REPORT INFORMATION
  Report Type: 
  Country: None (occurrence: None)
  Receive Date: 20100213
  Receipt Date: 20100201
  Transmission Date: 20100710
  Serious: Yes (Hospitalization)
  Sender: FDA-Public Use
  Company Number: US-ELI_LILLY_AND_COMPANY-US201002001654

PATIENT
  Sex: Male

DRUGS (5)
  1. FORTEO [Suspect]
     Indication: OSTEOPOROSIS
     Dosage: 20 UG, DAILY (1/D)
     Route: 065
     Dates: start: 20091201
  2. COZAAR [Concomitant]
     Dosage: UNK, UNKNOWN
     Route: 065
  3. DIURETICS [Concomitant]
     Dosage: UNK, UNKNOWN
     Route: 065
  4. OXYCODONE HCL [Concomitant]
     Dosage: UNK, UNKNOWN
     Route: 065
  5. ANTIBIOTICS [Concomitant]
     Dosage: UNK, UNKNOWN
     Route: 065

REACTIONS (7)
  - ABDOMINAL PAIN UPPER [None]
  - BLISTER [None]
  - FATIGUE [None]
  - INFECTION [None]
  - INSOMNIA [None]
  - OEDEMA PERIPHERAL [None]
  - SECRETION DISCHARGE [None]
